FAERS Safety Report 20670508 (Version 1)
Quarter: 2022Q2

REPORT INFORMATION
  Report Type: Spontaneous
  Country: US (occurrence: US)
  Receive Date: 20220404
  Receipt Date: 20220404
  Transmission Date: 20220721
  Serious: Yes (Other)
  Sender: FDA-Public Use
  Company Number: US-OTSUKA-2022_021091

PATIENT
  Sex: Female
  Weight: 59.87 kg

DRUGS (1)
  1. INQOVI [Suspect]
     Active Substance: CEDAZURIDINE\DECITABINE
     Indication: Chronic myelomonocytic leukaemia
     Dosage: UNK (1 PILL FOR 4-5 DAYS AND THEN 28 DAYS OFF)
     Route: 065

REACTIONS (2)
  - Blood test abnormal [Unknown]
  - Product use issue [Unknown]
